FAERS Safety Report 5276922-9 (Version None)
Quarter: 2007Q1

REPORT INFORMATION
  Report Type: 
  Country: None (occurrence: None)
  Receive Date: 20070327
  Receipt Date: 20070319
  Transmission Date: 20070707
  Serious: Yes (Disabling, Other)
  Sender: FDA-Public Use
  Company Number: PHRM2007FR01062

PATIENT
  Age: 69 Year
  Sex: Female

DRUGS (3)
  1. ZOMETA [Suspect]
     Indication: METASTASES TO BONE
     Dosage: 4 MG, QD
     Route: 042
     Dates: start: 20051001, end: 20061001
  2. FEMARA [Concomitant]
     Indication: BREAST CANCER METASTATIC
  3. XELODA [Concomitant]
     Indication: BREAST CANCER METASTATIC

REACTIONS (5)
  - COMPUTERISED TOMOGRAM ABNORMAL [None]
  - OSTEONECROSIS [None]
  - SURGERY [None]
  - TOOTH EXTRACTION [None]
  - WOUND DEBRIDEMENT [None]
